FAERS Safety Report 8916650 (Version 1)
Quarter: 2012Q4

REPORT INFORMATION
  Report Type: 
  Country: SE (occurrence: SE)
  Receive Date: 20121120
  Receipt Date: 20121120
  Transmission Date: 20130627
  Serious: Yes (Hospitalization)
  Sender: FDA-Public Use
  Company Number: SE-PFIZER INC-2012284741

PATIENT
  Age: 86 Year
  Sex: Male
  Weight: 99 kg

DRUGS (10)
  1. GENOTROPIN [Suspect]
     Dosage: 0.27 mg, 1x/day,7 injections/week
     Route: 058
     Dates: start: 19990506
  2. RANITIDINE [Concomitant]
     Indication: OESOPHAGITIS
     Dosage: UNK
     Dates: start: 19920101
  3. ACETYLSALICYLSYRA [Concomitant]
     Indication: ANGINA PECTORIS
     Dosage: UNK
     Dates: start: 19920101
  4. ZANTAC [Concomitant]
     Indication: OESOPHAGITIS
     Dosage: UNK
     Dates: start: 19940608
  5. ISOSORBIDE MONONITRATE [Concomitant]
     Indication: ANGINA PECTORIS
     Dosage: UNK
     Dates: start: 19961001
  6. LOSEC [Concomitant]
     Indication: OESOPHAGITIS
     Dosage: UNK
     Dates: start: 19980201
  7. HIRUDOID [Concomitant]
     Indication: THROMBOPHLEBITIS
     Dosage: UNK
     Dates: start: 19980619
  8. BEHEPAN [Concomitant]
     Indication: VITAMIN B COMPLEX DEFICIENCY
     Dosage: UNK
     Dates: start: 20000912
  9. LEVAXIN [Concomitant]
     Indication: TSH DECREASED
     Dosage: UNK
     Dates: start: 19971209
  10. LEVAXIN [Concomitant]
     Indication: PRIMARY HYPOTHYROIDISM

REACTIONS (3)
  - Chest pain [Unknown]
  - Back pain [Unknown]
  - Dyspnoea [Unknown]
